FAERS Safety Report 6877730-5 (Version None)
Quarter: 2010Q3

REPORT INFORMATION
  Report Type: 
  Country: None (occurrence: None)
  Receive Date: 20100727
  Receipt Date: 20100624
  Transmission Date: 20110219
  Serious: No
  Sender: FDA-Public Use
  Company Number: US-ABBOTT-10P-163-0654078-00

PATIENT
  Age: 52 Year
  Sex: Female

DRUGS (3)
  1. SYNTHROID [Suspect]
     Indication: PRODUCT USED FOR UNKNOWN INDICATION
     Dates: start: 20100615
  2. UNKNOWN [Concomitant]
     Indication: HYPERTENSION
  3. UNKNOWN [Concomitant]
     Indication: PROPHYLAXIS

REACTIONS (2)
  - FEELING HOT [None]
  - SENSORY DISTURBANCE [None]
